FAERS Safety Report 25035165 (Version 1)
Quarter: 2025Q1

REPORT INFORMATION
  Report Type: Spontaneous
  Country: CL (occurrence: CL)
  Receive Date: 20250304
  Receipt Date: 20250304
  Transmission Date: 20250409
  Serious: Yes (Hospitalization, Other)
  Sender: RANBAXY
  Company Number: CL-SUN PHARMACEUTICAL INDUSTRIES LTD-2025R1-496606

PATIENT
  Age: 5 Year
  Sex: Female

DRUGS (2)
  1. CALCITRIOL [Suspect]
     Active Substance: CALCITRIOL
     Indication: Hypophosphataemic osteomalacia
     Dosage: 0.25 MICROGRAM, DAILY
     Route: 065
  2. UNSPECIFIED INGREDIENT [Suspect]
     Active Substance: UNSPECIFIED INGREDIENT
     Indication: Hypophosphataemic osteomalacia
     Route: 065

REACTIONS (2)
  - Anaemia [Recovering/Resolving]
  - Haemorrhage [Recovering/Resolving]
